FAERS Safety Report 5430149-6 (Version None)
Quarter: 2007Q3

REPORT INFORMATION
  Report Type: 
  Country: None (occurrence: None)
  Receive Date: 20070829
  Receipt Date: 20070816
  Transmission Date: 20080115
  Serious: Yes (Other)
  Sender: FDA-Public Use
  Company Number: IT-ABBOTT-05P-083-0305898-00

PATIENT
  Age: 9 Year
  Sex: Female

DRUGS (4)
  1. VALPROATE SODIUM [Suspect]
     Indication: CONVULSION
     Dosage: 20 MG/KG/DAY
     Route: 048
  2. VALPROATE SODIUM [Suspect]
     Dosage: 25 MG/KG/DAY
     Route: 048
  3. MEROPENEM [Interacting]
     Indication: PNEUMONIA
     Route: 042
  4. MEROPENEM [Interacting]
     Route: 042

REACTIONS (3)
  - ANTICONVULSANT DRUG LEVEL DECREASED [None]
  - CONVULSION [None]
  - DRUG INTERACTION [None]
